FAERS Safety Report 18139063 (Version 1)
Quarter: 2020Q3

REPORT INFORMATION
  Report Type: Report from Study
  Country: US (occurrence: US)
  Receive Date: 20200812
  Receipt Date: 20200812
  Transmission Date: 20201103
  Serious: Yes (Hospitalization, Other)
  Sender: FDA-Public Use
  Company Number: US-GILEAD-2020-0485592

PATIENT
  Age: 51 Year
  Sex: Male

DRUGS (4)
  1. REMODULIN [Suspect]
     Active Substance: TREPROSTINIL
     Indication: PULMONARY ARTERIAL HYPERTENSION
     Dosage: 2.5 MG
     Route: 065
     Dates: start: 202006
  2. REMODULIN [Suspect]
     Active Substance: TREPROSTINIL
     Dosage: 19.8 NG/KG/MIN
     Route: 065
  3. REMODULIN [Suspect]
     Active Substance: TREPROSTINIL
     Dosage: 18.7 NG/KG/MIN
     Route: 065
     Dates: start: 20200719
  4. AMBRISENTAN [Suspect]
     Active Substance: AMBRISENTAN
     Indication: PULMONARY ARTERIAL HYPERTENSION
     Dosage: 10 MG, QD
     Route: 065
     Dates: start: 20190816

REACTIONS (4)
  - Cardiac flutter [Unknown]
  - Fluid overload [Unknown]
  - Nausea [Unknown]
  - Dermatitis bullous [Not Recovered/Not Resolved]

NARRATIVE: CASE EVENT DATE: 20200719
